FAERS Safety Report 4539238-1 (Version None)
Quarter: 2004Q4

REPORT INFORMATION
  Report Type: 
  Country: None (occurrence: None)
  Receive Date: 20041222
  Receipt Date: 20041210
  Transmission Date: 20050328
  Serious: Yes (Other)
  Sender: FDA-Public Use
  Company Number: 2004082689

PATIENT
  Age: 68 Year
  Sex: Male

DRUGS (13)
  1. LIPITOR [Suspect]
     Indication: HYPERCHOLESTEROLAEMIA
     Dosage: 10 MG ( 1 IN 1 D), ORAL
     Route: 048
     Dates: start: 20040908, end: 20041001
  2. TICLOPIDINE HCL [Suspect]
     Indication: ACUTE MYOCARDIAL INFARCTION
     Dosage: 200 MG (1 IN 1 D), ORAL
     Route: 048
     Dates: start: 20040902, end: 20040924
  3. ALLOPURINOL [Suspect]
     Indication: HYPERURICAEMIA
     Dosage: 100 MG (1 IN 1 D), ORAL
     Route: 048
     Dates: start: 20040909, end: 20041005
  4. WARFARIN (WARFARIN) [Suspect]
     Indication: INTRACARDIAC THROMBUS
     Dosage: 5 MG (1 IN 1 D), ORAL
     Route: 048
     Dates: start: 20040913, end: 20040927
  5. BUFFERIN [Concomitant]
  6. FUROSEMIDE [Concomitant]
  7. LISINOPRIL [Concomitant]
  8. SPIRONOLACTONE [Concomitant]
  9. CALCIUM POLYSTYRENE SULFONATE (CALCIUM POLYSTYRENE SULFONATE) [Concomitant]
  10. METOPROLOL TARTRATE [Concomitant]
  11. CARVEDILOL [Concomitant]
  12. MAGNESIUM OXIDE (MAGNESIUM OXIDE) [Concomitant]
  13. RANITIDINE HYDROCHLORIDE [Concomitant]

REACTIONS (13)
  - ALANINE AMINOTRANSFERASE INCREASED [None]
  - ASPARTATE AMINOTRANSFERASE INCREASED [None]
  - BLOOD PRESSURE DECREASED [None]
  - FIBRIN DEGRADATION PRODUCTS INCREASED [None]
  - GAMMA-GLUTAMYLTRANSFERASE INCREASED [None]
  - HEPATOTOXICITY [None]
  - HYPOPERFUSION [None]
  - LIVER DISORDER [None]
  - PROTHROMBIN TIME PROLONGED [None]
  - RED BLOOD CELLS URINE [None]
  - RENAL IMPAIRMENT [None]
  - URINARY SEDIMENT PRESENT [None]
  - WHITE BLOOD CELLS URINE POSITIVE [None]
